FAERS Safety Report 15189938 (Version 1)
Quarter: 2018Q3

REPORT INFORMATION
  Report Type: Report from Study
  Country: ES (occurrence: ES)
  Receive Date: 20180724
  Receipt Date: 20180724
  Transmission Date: 20181010
  Serious: Yes (Hospitalization)
  Sender: FDA-Public Use
  Company Number: PHHY2018ES053462

PATIENT
  Sex: Male
  Weight: 81 kg

DRUGS (1)
  1. ADOPORT [Suspect]
     Active Substance: TACROLIMUS
     Indication: IMMUNOSUPPRESSION
     Dosage: 8 MG, UNK
     Route: 048
     Dates: start: 20170105

REACTIONS (1)
  - Delayed graft function [Recovered/Resolved]
